FAERS Safety Report 6762077-8 (Version None)
Quarter: 2010Q2

REPORT INFORMATION
  Report Type: 
  Country: None (occurrence: None)
  Receive Date: 20100520
  Receipt Date: 20100510
  Transmission Date: 20101027
  Serious: Yes (Other)
  Sender: FDA-Public Use
  Company Number: 2010022990

PATIENT

DRUGS (1)
  1. VIVAGLOBIN [Suspect]
     Dosage: (5.76 G, 5.76 GM WEEKLY SUBCUTANEOUS)
     Route: 058
     Dates: start: 20100301

REACTIONS (2)
  - ANTI-HBC IGG ANTIBODY POSITIVE [None]
  - HEPATITIS B SURFACE ANTIGEN POSITIVE [None]
